FAERS Safety Report 18534998 (Version 2)
Quarter: 2020Q4

REPORT INFORMATION
  Report Type: Spontaneous
  Country: US (occurrence: US)
  Receive Date: 20201123
  Receipt Date: 20201216
  Transmission Date: 20210114
  Serious: No
  Sender: FDA-Public Use
  Company Number: US-PFIZER INC-2020457833

PATIENT
  Age: 72 Year
  Sex: Female

DRUGS (2)
  1. IBRANCE [Suspect]
     Active Substance: PALBOCICLIB
     Indication: BREAST CANCER FEMALE
     Dosage: 100 MG
     Dates: start: 20201111
  2. IBRANCE [Suspect]
     Active Substance: PALBOCICLIB
     Dosage: 100 MG, CYCLIC (100 MG TAKE 1 T Q (EVERY) D X 21 DAYS. 7 DAYS OFF)
     Dates: start: 20201024

REACTIONS (3)
  - Paraesthesia [Unknown]
  - Arthropathy [Not Recovered/Not Resolved]
  - Hypoaesthesia [Unknown]
